FAERS Safety Report 5806182-9 (Version None)
Quarter: 2008Q3

REPORT INFORMATION
  Report Type: 
  Country: None (occurrence: None)
  Receive Date: 20080710
  Receipt Date: 20080701
  Transmission Date: 20090109
  Serious: Yes (Hospitalization, Other)
  Sender: FDA-Public Use
  Company Number: KR-AVENTIS-200816326GDDC

PATIENT
  Age: 79 Year
  Sex: Male

DRUGS (11)
  1. DAONIL [Suspect]
     Indication: DIABETES MELLITUS
     Route: 048
  2. GLIMEPIRIDE [Suspect]
     Indication: DIABETES MELLITUS
     Route: 048
  3. ACARBOSE [Suspect]
     Indication: DIABETES MELLITUS
     Route: 048
  4. ASPIRIN [Suspect]
     Route: 048
  5. ATORVASTATIN CALCIUM [Suspect]
     Route: 048
  6. UNKNOWN DRUG [Suspect]
     Dosage: DOSE QUANTITY: 2
     Route: 048
  7. EFONIDIPINE [Suspect]
     Route: 048
  8. FLUCONAZOLE [Suspect]
     Route: 048
  9. HYDROCHLOROTHIAZIDE [Suspect]
     Indication: HYPERTENSION
     Dosage: DOSE QUANTITY: 1
     Route: 048
  10. ATENOLOL [Suspect]
     Indication: HYPERTENSION
     Route: 048
  11. ROSIGLITAZONE [Suspect]
     Indication: DIABETES MELLITUS
     Route: 048

REACTIONS (2)
  - DRUG INTERACTION [None]
  - HYPOGLYCAEMIA [None]
